FAERS Safety Report 4864036-9 (Version None)
Quarter: 2005Q4

REPORT INFORMATION
  Report Type: 
  Country: None (occurrence: None)
  Receive Date: 20051219
  Receipt Date: 20051206
  Transmission Date: 20060501
  Serious: Yes (Other)
  Sender: FDA-Public Use
  Company Number: 2005165349

PATIENT
  Age: 66 Year
  Sex: Male

DRUGS (2)
  1. VIAGRA [Suspect]
     Indication: ERECTILE DYSFUNCTION
     Dosage: 50 MG AS NECESSARY, ORAL
     Route: 048
     Dates: start: 20030101, end: 20050201
  2. ASPIRIN [Concomitant]

REACTIONS (1)
  - STENT PLACEMENT [None]
